FAERS Safety Report 8616360-1 (Version None)
Quarter: 2012Q3

REPORT INFORMATION
  Report Type: 
  Country: None (occurrence: None)
  Receive Date: 20120823
  Receipt Date: 20120523
  Transmission Date: 20120928
  Serious: No
  Sender: FDA-Public Use
  Company Number: US-MYLANLABS-2012S1003036

PATIENT
  Age: 25 Year
  Sex: Female
  Weight: 61.24 kg

DRUGS (4)
  1. BUDESONIDE [Suspect]
     Indication: CROHN'S DISEASE
     Dates: start: 20120201, end: 20120201
  2. BUDESONIDE [Suspect]
     Indication: COLITIS
     Dates: start: 20120201, end: 20120201
  3. IMODIUM [Concomitant]
  4. VALIUM [Concomitant]

REACTIONS (4)
  - ABDOMINAL PAIN UPPER [None]
  - FATIGUE [None]
  - DYSPEPSIA [None]
  - CHEST PAIN [None]
